FAERS Safety Report 23019766 (Version 1)
Quarter: 2023Q4

REPORT INFORMATION
  Report Type: Spontaneous
  Country: CN (occurrence: None)
  Receive Date: 20231003
  Receipt Date: 20231003
  Transmission Date: 20240110
  Serious: Yes (Other)
  Sender: FDA-Public Use
  Company Number: CN-ROCHE-3429699

PATIENT
  Age: 70 Year
  Sex: Female
  Weight: 62 kg

DRUGS (11)
  1. AVASTIN [Suspect]
     Active Substance: BEVACIZUMAB
     Indication: Rectal cancer metastatic
     Dosage: FOURTH CYCLE OF TARGETED THERAPY
     Route: 041
     Dates: start: 20230823
  2. AVASTIN [Suspect]
     Active Substance: BEVACIZUMAB
     Indication: Metastases to liver
  3. FLUOROURACIL [Suspect]
     Active Substance: FLUOROURACIL
     Indication: Rectal cancer metastatic
     Dosage: CYCLE 5 FOLFIRI CHEMOTHERAPY
     Route: 042
     Dates: start: 20230823
  4. FLUOROURACIL [Suspect]
     Active Substance: FLUOROURACIL
     Indication: Metastases to liver
     Dosage: CYCLE 5 FOLFIRI CHEMOTHERAPY
     Route: 042
     Dates: start: 20230823
  5. LEUCOVORIN CALCIUM [Suspect]
     Active Substance: LEUCOVORIN CALCIUM
     Indication: Rectal cancer metastatic
     Dosage: CYCLE 5 FOLFIRI CHEMOTHERAPY
     Route: 041
     Dates: start: 20230823
  6. LEUCOVORIN CALCIUM [Suspect]
     Active Substance: LEUCOVORIN CALCIUM
     Indication: Metastases to liver
  7. IRINOTECAN HYDROCHLORIDE [Suspect]
     Active Substance: IRINOTECAN HYDROCHLORIDE
     Indication: Rectal cancer metastatic
     Dosage: CYCLE 5 FOLFIRI CHEMOTHERAPY
     Route: 041
     Dates: start: 20230823
  8. IRINOTECAN HYDROCHLORIDE [Suspect]
     Active Substance: IRINOTECAN HYDROCHLORIDE
     Indication: Metastases to liver
  9. SODIUM CHLORIDE [Concomitant]
     Active Substance: SODIUM CHLORIDE
     Route: 041
     Dates: start: 20230823
  10. DEXTROSE [Concomitant]
     Active Substance: DEXTROSE\DEXTROSE MONOHYDRATE
     Route: 041
     Dates: start: 20230823
  11. DEXTROSE [Concomitant]
     Active Substance: DEXTROSE\DEXTROSE MONOHYDRATE
     Dates: start: 20230823

REACTIONS (2)
  - Myelosuppression [Recovered/Resolved]
  - Granulocyte count decreased [Recovered/Resolved]

NARRATIVE: CASE EVENT DATE: 20230906
